FAERS Safety Report 9413633 (Version 3)
Quarter: 2013Q4

REPORT INFORMATION
  Report Type: Spontaneous
  Country: US (occurrence: US)
  Receive Date: 20130722
  Receipt Date: 20131112
  Transmission Date: 20140711
  Serious: Yes (Other)
  Sender: FDA-Public Use
  Company Number: US-MERCK-1307USA009111

PATIENT
  Age: 58 Year
  Sex: Male

DRUGS (4)
  1. PEGINTRON [Suspect]
     Indication: HEPATITIS C
     Dosage: REDIPEN
     Dates: start: 20130422, end: 20130621
  2. PEGINTRON [Suspect]
     Dosage: VIAL
     Dates: start: 20130628, end: 20130722
  3. REBETOL [Suspect]
     Indication: HEPATITIS C
     Dosage: UNK
     Route: 048
     Dates: start: 20130422, end: 20130722
  4. TELAPREVIR [Suspect]
     Indication: HEPATITIS C
     Dosage: UNK
     Dates: start: 20130422, end: 20130722

REACTIONS (6)
  - Syncope [Unknown]
  - Fall [Unknown]
  - Suture insertion [Unknown]
  - Back injury [Unknown]
  - Asthenia [Unknown]
  - Drug ineffective [Unknown]
